FAERS Safety Report 5652224-3 (Version None)
Quarter: 2008Q1

REPORT INFORMATION
  Report Type: 
  Country: None (occurrence: None)
  Receive Date: 20080304
  Receipt Date: 20080219
  Transmission Date: 20080703
  Serious: Yes (Life-Threatening, Other)
  Sender: FDA-Public Use
  Company Number: 2008SP004021

PATIENT
  Age: 19 Year
  Sex: Male

DRUGS (3)
  1. RIBAVIRIN [Suspect]
     Indication: HEPATITIS C VIRUS
     Dosage: PO
     Route: 048
  2. PEG-INTRON [Suspect]
     Indication: HEPATITIS C
     Dosage: IV
     Route: 042
  3. TACROLIMUS [Concomitant]

REACTIONS (6)
  - ANAEMIA [None]
  - LEUKOPENIA [None]
  - LIVER TRANSPLANT REJECTION [None]
  - POST PROCEDURAL BILE LEAK [None]
  - SEPTIC SHOCK [None]
  - THROMBOCYTOPENIA [None]
